FAERS Safety Report 6491602-X (Version None)
Quarter: 2009Q4

REPORT INFORMATION
  Report Type: 
  Country: None (occurrence: None)
  Receive Date: 20091208
  Receipt Date: 20091201
  Transmission Date: 20100525
  Serious: Yes (Death, Other)
  Sender: FDA-Public Use
  Company Number: CLOF-1000682

PATIENT
  Age: 15 Year
  Sex: Male

DRUGS (2)
  1. CLOLAR [Suspect]
     Indication: ACUTE BIPHENOTYPIC LEUKAEMIA
     Dosage: 72 MG, QDX5, INTRAVENOUS
     Route: 042
     Dates: start: 20090701, end: 20090705
  2. CYTARABINE [Suspect]
     Indication: ACUTE BIPHENOTYPIC LEUKAEMIA
     Dosage: 1.79 G, QDX5, INTRAVENOUS
     Route: 042
     Dates: start: 20090701, end: 20090705

REACTIONS (4)
  - LEUKAEMIA RECURRENT [None]
  - MULTI-ORGAN FAILURE [None]
  - STEM CELL TRANSPLANT [None]
  - VENOOCCLUSIVE DISEASE [None]
